FAERS Safety Report 4738099-5 (Version None)
Quarter: 2005Q3

REPORT INFORMATION
  Report Type: 
  Country: None (occurrence: None)
  Receive Date: 20050805
  Receipt Date: 20050805
  Transmission Date: 20060218
  Serious: Yes (Hospitalization)
  Sender: FDA-Public Use
  Company Number: None

PATIENT
  Age: 44 Year
  Sex: Female
  Weight: 104 kg

DRUGS (2)
  1. DURAMORPH PF [Suspect]
     Indication: OSTEOARTHRITIS
     Dosage: 5 MG
     Dates: start: 20040902
  2. MORPHINE [Concomitant]

REACTIONS (3)
  - POST PROCEDURAL COMPLICATION [None]
  - RESPIRATORY ARREST [None]
  - SOMNOLENCE [None]
